FAERS Safety Report 4489931-4 (Version None)
Quarter: 2004Q4

REPORT INFORMATION
  Report Type: 
  Country: None (occurrence: None)
  Receive Date: 20041101
  Receipt Date: 20040811
  Transmission Date: 20050328
  Serious: Yes (Death, Life-Threatening)
  Sender: FDA-Public Use
  Company Number: US-GLAXOSMITHKLINE-A0521958A

PATIENT
  Sex: Female

DRUGS (4)
  1. LOTRONEX [Suspect]
     Indication: IRRITABLE BOWEL SYNDROME
     Dosage: 1MG PER DAY
     Route: 048
  2. INSULIN [Concomitant]
  3. FOSAMAX [Concomitant]
  4. PROCRIT [Concomitant]

REACTIONS (1)
  - MULTIPLE MYELOMA [None]
